FAERS Safety Report 5153830-5 (Version None)
Quarter: 2006Q4

REPORT INFORMATION
  Report Type: 
  Country: None (occurrence: None)
  Receive Date: 20061120
  Receipt Date: 20060810
  Transmission Date: 20070319
  Serious: Yes (Death, Other)
  Sender: FDA-Public Use
  Company Number: PHMT2006CA01641

PATIENT
  Age: 48 Year
  Sex: Male

DRUGS (4)
  1. CLONAZEPAM [Concomitant]
     Dosage: 0.5 MG, QHS
  2. COGENTIN [Concomitant]
     Dosage: 1 MG, BID
  3. ATIVAN [Concomitant]
     Dosage: 1 MG, PRN
     Route: 060
  4. CLOZARIL [Suspect]
     Indication: DEPRESSION
     Dosage: 250 MG, BID
     Route: 048
     Dates: start: 19960101, end: 20060809

REACTIONS (7)
  - AGITATION [None]
  - ARRHYTHMIA [None]
  - CARDIOPULMONARY FAILURE [None]
  - CONVULSION [None]
  - DRUG LEVEL INCREASED [None]
  - PERICARDIAL EFFUSION [None]
  - SOMNOLENCE [None]
